FAERS Safety Report 12672904 (Version 2)
Quarter: 2016Q3

REPORT INFORMATION
  Report Type: Spontaneous
  Country: None (occurrence: BR)
  Receive Date: 20160822
  Receipt Date: 20160902
  Transmission Date: 20161109
  Serious: Yes (Other)
  Sender: FDA-Public Use
  Company Number: BR-MERCK KGAA-1056581

PATIENT

DRUGS (1)
  1. NOVOTHYROX [Suspect]
     Active Substance: LEVOTHYROXINE SODIUM

REACTIONS (8)
  - Arrhythmia [None]
  - Headache [None]
  - Diarrhoea [None]
  - Drug dose omission [None]
  - Abdominal pain [None]
  - Pain [None]
  - Dizziness [None]
  - Tachycardia [None]
